FAERS Safety Report 8573862-4 (Version None)
Quarter: 2012Q3

REPORT INFORMATION
  Report Type: 
  Country: None (occurrence: None)
  Receive Date: 20120806
  Receipt Date: 20111219
  Transmission Date: 20120928
  Serious: No
  Sender: FDA-Public Use
  Company Number: US-GLAXOSMITHKLINE-A0958663A

PATIENT
  Age: 85 Year
  Sex: Female

DRUGS (10)
  1. METOPROLOL SUCCINATE [Concomitant]
  2. LASIX [Concomitant]
  3. PROCARDIA XL [Concomitant]
  4. PRAVASTATIN [Concomitant]
  5. FLUTICASONE PROPIONATE [Suspect]
     Indication: ASTHMA
     Dosage: 2PUFF TWICE PER DAY
     Route: 055
     Dates: start: 20010101
  6. ASPIRIN [Concomitant]
  7. MESALAMINE [Concomitant]
  8. MIRALAX [Concomitant]
  9. DEXLANSOPRAZOLE [Concomitant]
  10. METFORMIN HYDROCHLORIDE [Concomitant]

REACTIONS (4)
  - OROPHARYNGEAL PAIN [None]
  - TONGUE DISCOLOURATION [None]
  - CANDIDIASIS [None]
  - TONGUE DISORDER [None]
